FAERS Safety Report 4363914-7 (Version None)
Quarter: 2004Q2

REPORT INFORMATION
  Report Type: 
  Country: None (occurrence: None)
  Receive Date: 20040518
  Receipt Date: 20040309
  Transmission Date: 20050107
  Serious: No
  Sender: FDA-Public Use
  Company Number: PHEH2004US02477

PATIENT
  Age: 69 Year
  Sex: Female

DRUGS (8)
  1. GLEEVEC [Suspect]
     Indication: GASTROINTESTINAL STROMAL TUMOUR
     Dosage: 400 MG, QD, ORAL
     Route: 048
     Dates: start: 20040220, end: 20040227
  2. VERAPAMIL [Concomitant]
  3. SPIRONOLACTONE [Concomitant]
  4. TERAZOSIN HCL [Concomitant]
  5. LEVOXYL [Concomitant]
  6. TRAZODONE HCL [Concomitant]
  7. ZETIA [Concomitant]
  8. FOSAMAX [Concomitant]

REACTIONS (4)
  - BLOOD PRESSURE INCREASED [None]
  - DIZZINESS [None]
  - FACE OEDEMA [None]
  - OEDEMA PERIPHERAL [None]
